FAERS Safety Report 25305931 (Version 1)
Quarter: 2025Q2

REPORT INFORMATION
  Report Type: Spontaneous
  Country: US (occurrence: None)
  Receive Date: 20250513
  Receipt Date: 20250513
  Transmission Date: 20250717
  Serious: Yes (Death, Life-Threatening)
  Sender: FDA-CTU
  Company Number: None

PATIENT
  Age: 72 Year
  Sex: Male

DRUGS (1)
  1. POMALYST [Suspect]
     Active Substance: POMALIDOMIDE
     Indication: Plasma cell myeloma
     Dosage: FREQUENCY : DAILY;?
     Route: 048
     Dates: start: 20190503, end: 20250314

REACTIONS (7)
  - Diarrhoea [None]
  - Acute kidney injury [None]
  - Encephalopathy [None]
  - Tooth infection [None]
  - Lethargy [None]
  - Hypoglycaemia [None]
  - Cardiac arrest [None]

NARRATIVE: CASE EVENT DATE: 20250308
